FAERS Safety Report 12449612 (Version 2)
Quarter: 2016Q2

REPORT INFORMATION
  Report Type: Spontaneous
  Country: US (occurrence: US)
  Receive Date: 20160609
  Receipt Date: 20160613
  Transmission Date: 20160815
  Serious: No
  Sender: FDA-Public Use
  Company Number: US-009507513-1606USA003080

PATIENT
  Age: 36 Year
  Sex: Male

DRUGS (2)
  1. ASCORBIC ACID. [Concomitant]
     Active Substance: ASCORBIC ACID
  2. ZETIA [Suspect]
     Active Substance: EZETIMIBE
     Indication: BLOOD CHOLESTEROL
     Dosage: 10 MG, ONCE A DAY
     Route: 048

REACTIONS (2)
  - Chest pain [Not Recovered/Not Resolved]
  - Paraesthesia [Recovering/Resolving]
